FAERS Safety Report 24962338 (Version 1)
Quarter: 2025Q1

REPORT INFORMATION
  Report Type: Spontaneous
  Country: US (occurrence: US)
  Receive Date: 20250212
  Receipt Date: 20250212
  Transmission Date: 20250409
  Serious: No
  Sender: BIOGEN
  Company Number: US-BIOGEN-2025BI01299544

PATIENT
  Sex: Female

DRUGS (1)
  1. ZURZUVAE [Suspect]
     Active Substance: ZURANOLONE
     Indication: Perinatal depression
     Route: 050
     Dates: start: 20250129, end: 20250202

REACTIONS (5)
  - Muscle twitching [Recovered/Resolved]
  - Hypersomnia [Recovered/Resolved]
  - Nightmare [Recovered/Resolved]
  - Fear [Recovered/Resolved]
  - Motor dysfunction [Recovered/Resolved]
